FAERS Safety Report 10152225 (Version 1)
Quarter: 2014Q2

REPORT INFORMATION
  Report Type: Spontaneous
  Country: ES (occurrence: None)
  Receive Date: 20140501
  Receipt Date: 20140501
  Transmission Date: 20141212
  Serious: Yes (Life-Threatening)
  Sender: FDA-Public Use
  Company Number: 2014/023

PATIENT
  Age: 59 Year
  Sex: Female

DRUGS (1)
  1. LEVOFLOXACIN (NO PREF. NAME) 500 MG [Suspect]
     Indication: RESPIRATORY TRACT INFECTION
     Dosage: 7 DAYS
     Route: 048

REACTIONS (4)
  - Autoimmune hepatitis [None]
  - Nasal polyps [None]
  - Hepatotoxicity [None]
  - Portal fibrosis [None]
